FAERS Safety Report 9989168 (Version 1)
Quarter: 2014Q1

REPORT INFORMATION
  Report Type: Spontaneous
  Country: BR (occurrence: BR)
  Receive Date: 20140310
  Receipt Date: 20140310
  Transmission Date: 20141002
  Serious: Yes (Other)
  Sender: FDA-Public Use
  Company Number: 2014SP001218

PATIENT
  Age: 36 Year
  Sex: Female

DRUGS (1)
  1. METHOTREXATE [Suspect]
     Indication: ANKYLOSING SPONDYLITIS

REACTIONS (6)
  - Off label use [Unknown]
  - Drug ineffective [Unknown]
  - Uveitis [Unknown]
  - Back pain [Unknown]
  - Pain [Unknown]
  - Ocular hyperaemia [Unknown]
